FAERS Safety Report 12392334 (Version 1)
Quarter: 2016Q2

REPORT INFORMATION
  Report Type: Spontaneous
  Country: None (occurrence: None)
  Receive Date: 20160520
  Receipt Date: 20160520
  Transmission Date: 20160815
  Serious: Yes (Other)
  Sender: FDA-Public Use
  Company Number: None

PATIENT
  Age: 66 Year
  Sex: Female

DRUGS (1)
  1. LISINOPRIL, 10MG ACCORD [Suspect]
     Active Substance: LISINOPRIL

REACTIONS (3)
  - Dry mouth [None]
  - Trismus [None]
  - Neck pain [None]

NARRATIVE: CASE EVENT DATE: 20160519
